FAERS Safety Report 5771834-6 (Version None)
Quarter: 2008Q2

REPORT INFORMATION
  Report Type: 
  Country: None (occurrence: None)
  Receive Date: 20080613
  Receipt Date: 20080610
  Transmission Date: 20081010
  Serious: Yes (Other)
  Sender: FDA-Public Use
  Company Number: A0732510A

PATIENT
  Age: 61 Year
  Sex: Male

DRUGS (13)
  1. ZYBAN [Suspect]
     Dosage: 150MG TWICE PER DAY
     Route: 048
  2. ARANESP [Concomitant]
  3. COUMADIN [Concomitant]
  4. DIGOXIN [Concomitant]
  5. ASPIRIN [Concomitant]
  6. LORAZEPAM [Concomitant]
  7. METOPROLOL [Concomitant]
  8. PERINDOPRIL [Concomitant]
  9. SEREVENT [Concomitant]
  10. TRAZODONE HCL [Concomitant]
  11. URSODIOL [Concomitant]
  12. VENLAFAXINE HCL [Concomitant]
  13. ZANTAC [Concomitant]

REACTIONS (4)
  - LEUKOPENIA [None]
  - MALAISE [None]
  - NEUTROPENIA [None]
  - VOMITING [None]
